FAERS Safety Report 14170000 (Version 1)
Quarter: 2017Q4

REPORT INFORMATION
  Report Type: Spontaneous
  Country: US (occurrence: US)
  Receive Date: 20171108
  Receipt Date: 20171108
  Transmission Date: 20180321
  Serious: No
  Sender: FDA-Public Use
  Company Number: US-LEXICON PHARMACEUTICALS, INC-17-1606-01005

PATIENT
  Sex: Female

DRUGS (13)
  1. LOMOTIL [Concomitant]
     Active Substance: ATROPINE SULFATE\DIPHENOXYLATE HYDROCHLORIDE
  2. IBANDRONATE SODIUM. [Concomitant]
     Active Substance: IBANDRONATE SODIUM
  3. CELECOXIB. [Concomitant]
     Active Substance: CELECOXIB
  4. MEGESTROL [Concomitant]
     Active Substance: MEGESTROL
  5. QUESTRAN [Concomitant]
     Active Substance: CHOLESTYRAMINE
  6. METOPROLOL TARTRATE. [Concomitant]
     Active Substance: METOPROLOL TARTRATE
  7. TRAVATAN [Concomitant]
     Active Substance: TRAVOPROST
  8. MEGESTROL ACETATE. [Concomitant]
     Active Substance: MEGESTROL ACETATE
  9. METHIMAZOLE. [Concomitant]
     Active Substance: METHIMAZOLE
  10. TELOTRISTAT ETHYL [Suspect]
     Active Substance: TELOTRISTAT ETHYL
     Indication: CARCINOID SYNDROME
     Route: 048
     Dates: start: 20170810
  11. RESTASIS [Concomitant]
     Active Substance: CYCLOSPORINE
  12. FUROSEMIDE. [Concomitant]
     Active Substance: FUROSEMIDE
  13. ZOFRAN [Concomitant]
     Active Substance: ONDANSETRON HYDROCHLORIDE

REACTIONS (1)
  - Mass [Unknown]

NARRATIVE: CASE EVENT DATE: 2017
